FAERS Safety Report 10206006 (Version 1)
Quarter: 2014Q2

REPORT INFORMATION
  Report Type: Spontaneous
  Country: DE (occurrence: None)
  Receive Date: 20140527
  Receipt Date: 20140527
  Transmission Date: 20141212
  Serious: Yes (Other)
  Sender: FDA-Public Use
  Company Number: FK201401818

PATIENT
  Age: 54 Year
  Sex: Male

DRUGS (5)
  1. PROPRANOLOL HYDROCHLORIDE [Suspect]
     Indication: PRODUCT USED FOR UNKNOWN INDICATION
  2. DIPYRONE [Suspect]
     Indication: PRODUCT USED FOR UNKNOWN INDICATION
  3. ALLOPURINOL (ALLOPURINOL) [Suspect]
     Indication: PRODUCT USED FOR UNKNOWN INDICATION
  4. ANTIMICROBIALS (CHLORAMPHENICOL) [Concomitant]
  5. COMBINATION RETROVIRAL THERAPY (ANTIVIRALS FOR TRAETMENT OF HIV INFECTIONS, C) [Concomitant]

REACTIONS (1)
  - Agranulocytosis [None]
